FAERS Safety Report 8418864-3 (Version None)
Quarter: 2012Q2

REPORT INFORMATION
  Report Type: 
  Country: None (occurrence: None)
  Receive Date: 20120607
  Receipt Date: 20120606
  Transmission Date: 20120825
  Serious: No
  Sender: FDA-Public Use
  Company Number: US-BAYER-2012-056317

PATIENT

DRUGS (1)
  1. BETASERON [Suspect]
     Dosage: UNK
     Route: 058

REACTIONS (1)
  - FATIGUE [None]
